FAERS Safety Report 16406585 (Version 1)
Quarter: 2019Q2

REPORT INFORMATION
  Report Type: Report from Study
  Country: US (occurrence: US)
  Receive Date: 20190607
  Receipt Date: 20190607
  Transmission Date: 20190711
  Serious: Yes (Other)
  Sender: FDA-Public Use
  Company Number: US-PFIZER INC-2019118542

PATIENT
  Age: 25 Year
  Sex: Female

DRUGS (1)
  1. XELJANZ [Suspect]
     Active Substance: TOFACITINIB CITRATE
     Indication: COLITIS ULCERATIVE
     Dosage: 10 MG, 2X/DAY
     Route: 048
     Dates: start: 20190212

REACTIONS (9)
  - Haematochezia [Unknown]
  - Mucous stools [Unknown]
  - Abdominal pain [Unknown]
  - Frequent bowel movements [Unknown]
  - Condition aggravated [Unknown]
  - Sleep disorder [Unknown]
  - Acne [Unknown]
  - Depression [Unknown]
  - Crohn^s disease [Unknown]

NARRATIVE: CASE EVENT DATE: 2019
